FAERS Safety Report 4764903-0 (Version None)
Quarter: 2005Q3

REPORT INFORMATION
  Report Type: 
  Country: None (occurrence: None)
  Receive Date: 20050906
  Receipt Date: 20050822
  Transmission Date: 20060218
  Serious: Yes (Hospitalization, Other)
  Sender: FDA-Public Use
  Company Number: 2005091238

PATIENT
  Age: 8 Year
  Sex: Female

DRUGS (7)
  1. DETROL LA [Suspect]
     Indication: URINARY INCONTINENCE
     Dosage: 4 MG (4 MG, 1 IN 1 D)
     Dates: start: 20041001, end: 20050501
  2. PORT-A-CATH (PORT-A-CATH) [Suspect]
     Indication: ILL-DEFINED DISORDER
  3. PRILOSEC [Concomitant]
  4. ROBINUL (GLYCOPYRRONIUM BROMIDE) [Concomitant]
  5. XOPENEX [Concomitant]
  6. PULMICORT [Concomitant]
  7. GENTAMICIN SULFATE [Concomitant]

REACTIONS (9)
  - AUTONOMIC NERVOUS SYSTEM IMBALANCE [None]
  - CATHETER RELATED INFECTION [None]
  - HYPERTENSION [None]
  - HYPERTENSIVE CRISIS [None]
  - HYPOTENSION [None]
  - HYPOTHERMIA [None]
  - SEPTIC SHOCK [None]
  - SEROTONIN SYNDROME [None]
  - URINARY INCONTINENCE [None]
